FAERS Safety Report 5643007-9 (Version None)
Quarter: 2008Q1

REPORT INFORMATION
  Report Type: 
  Country: None (occurrence: None)
  Receive Date: 20080228
  Receipt Date: 20080221
  Transmission Date: 20080703
  Serious: Yes (Death, Hospitalization)
  Sender: FDA-Public Use
  Company Number: D0056217A

PATIENT
  Age: 70 Year
  Sex: Male
  Weight: 90 kg

DRUGS (8)
  1. AVANDAMET [Suspect]
     Dosage: 1004MG TWICE PER DAY
     Route: 048
     Dates: start: 20061002
  2. ASPIRIN [Concomitant]
     Dosage: 100MG PER DAY
     Route: 048
  3. ENALAPRIL MALEATE [Concomitant]
     Dosage: 20MG PER DAY
     Route: 048
  4. AMLODIPINE [Concomitant]
     Dosage: 10MG TWICE PER DAY
     Route: 048
  5. BISOPROLOL FUMARATE [Concomitant]
     Dosage: 5MG PER DAY
     Route: 048
  6. SIMVASTATIN [Concomitant]
     Dosage: 20MG PER DAY
     Route: 048
  7. NEXIUM [Concomitant]
     Dosage: 20MG PER DAY
     Route: 048
  8. INSULIN [Concomitant]
     Route: 058

REACTIONS (6)
  - ARTERIOSCLEROSIS CORONARY ARTERY [None]
  - CORONARY ANGIOPLASTY [None]
  - CORONARY ARTERIAL STENT INSERTION [None]
  - CORONARY ARTERY OCCLUSION [None]
  - CORONARY ARTERY STENOSIS [None]
  - SUDDEN CARDIAC DEATH [None]
